FAERS Safety Report 11451804 (Version 2)
Quarter: 2015Q3

REPORT INFORMATION
  Report Type: Report from Study
  Country: SE (occurrence: SE)
  Receive Date: 20150903
  Receipt Date: 20150914
  Transmission Date: 20151125
  Serious: Yes (Hospitalization)
  Sender: FDA-Public Use
  Company Number: SE-ROCHE-1606808

PATIENT
  Age: 67 Year
  Sex: Female
  Weight: 86 kg

DRUGS (9)
  1. RASBURICASE [Concomitant]
     Active Substance: RASBURICASE
     Route: 042
     Dates: start: 20150611, end: 20150612
  2. OBINUTUZUMAB [Suspect]
     Active Substance: OBINUTUZUMAB
     Indication: CHRONIC LYMPHOCYTIC LEUKAEMIA
     Dosage: THE LAST DOSE PRIOR TO THE HYPOKALEMIA WAS ADMINISTERED ON 25/JUN/2015
     Route: 065
     Dates: start: 20150611, end: 20150709
  3. OBINUTUZUMAB [Suspect]
     Active Substance: OBINUTUZUMAB
     Route: 065
     Dates: start: 20150729
  4. IBRUTINIB [Suspect]
     Active Substance: IBRUTINIB
     Route: 065
     Dates: start: 20150729
  5. OMEPRAZOL [Concomitant]
     Active Substance: OMEPRAZOLE
     Route: 048
     Dates: start: 1995
  6. NYSTATIN. [Concomitant]
     Active Substance: NYSTATIN
     Dosage: 100000 IU/ML
     Route: 048
     Dates: start: 20150625, end: 20150729
  7. IBRUTINIB [Suspect]
     Active Substance: IBRUTINIB
     Indication: CHRONIC LYMPHOCYTIC LEUKAEMIA
     Dosage: THE LAST DOSE PRIOR TO THE HYPOKALEMIA WAS ADMINISTERED ON 09/JUL/2015
     Route: 065
     Dates: start: 20150611, end: 20150710
  8. BENDROFLUMETHIAZIDE [Suspect]
     Active Substance: BENDROFLUMETHIAZIDE
     Indication: HYPERTENSION
     Route: 048
     Dates: start: 2000, end: 20150710
  9. ALLOPURINOL. [Concomitant]
     Active Substance: ALLOPURINOL
     Route: 048
     Dates: start: 20150610, end: 20150708

REACTIONS (3)
  - Hypomagnesaemia [Recovered/Resolved]
  - Hypokalaemia [Recovered/Resolved]
  - Herpes zoster [Recovered/Resolved]

NARRATIVE: CASE EVENT DATE: 20150709
